FAERS Safety Report 22093127 (Version 1)
Quarter: 2023Q1

REPORT INFORMATION
  Report Type: Spontaneous
  Country: CN (occurrence: CN)
  Receive Date: 20230314
  Receipt Date: 20230314
  Transmission Date: 20230418
  Serious: Yes (Death, Other)
  Sender: FDA-Public Use
  Company Number: CN-OTSUKA-2023_006433

PATIENT

DRUGS (15)
  1. BUSULFAN [Suspect]
     Active Substance: BUSULFAN
     Indication: Acute myeloid leukaemia
     Dosage: UNK
     Route: 042
  2. BUSULFAN [Suspect]
     Active Substance: BUSULFAN
     Indication: Bone marrow conditioning regimen
  3. DECITABINE [Suspect]
     Active Substance: DECITABINE
     Indication: Acute myeloid leukaemia
     Dosage: 20 MG/M2, QD
     Route: 042
  4. DECITABINE [Suspect]
     Active Substance: DECITABINE
     Indication: Bone marrow conditioning regimen
  5. VENETOCLAX [Suspect]
     Active Substance: VENETOCLAX
     Indication: Bone marrow conditioning regimen
     Dosage: UNK
     Route: 065
  6. CYTARABINE [Suspect]
     Active Substance: CYTARABINE
     Indication: Bone marrow conditioning regimen
     Dosage: 2 G/M2, QD
     Route: 042
  7. FLUDARABINE [Suspect]
     Active Substance: FLUDARABINE PHOSPHATE
     Indication: Bone marrow conditioning regimen
     Dosage: 30 MG/M2; ON DAY -5 TO DAY -1
     Route: 042
  8. GRANULOCYTE COLONY-STIMULATING FACTOR NOS [Suspect]
     Active Substance: GRANULOCYTE COLONY-STIMULATING FACTOR NOS
     Indication: Bone marrow conditioning regimen
     Dosage: 5 ?G/KG; ON DAY -14 TO DAY -10
     Route: 058
  9. CYCLOPHOSPHAMIDE [Suspect]
     Active Substance: CYCLOPHOSPHAMIDE
     Indication: Bone marrow conditioning regimen
     Dosage: 1 G/M2; DAY -5 TO DAY -4
     Route: 065
  10. SEMUSTINE [Suspect]
     Active Substance: SEMUSTINE
     Indication: Bone marrow conditioning regimen
     Dosage: 250 MG/M2; ON DAY -3
     Route: 048
  11. TACROLIMUS [Suspect]
     Active Substance: TACROLIMUS
     Indication: Prophylaxis against graft versus host disease
     Dosage: 0.015 MG/KG, QD; STARTED ON DAY -9 AND CONTINUED FOR 24 H
     Route: 042
  12. MYCOPHENOLATE MOFETIL [Suspect]
     Active Substance: MYCOPHENOLATE MOFETIL
     Indication: Prophylaxis against graft versus host disease
     Dosage: UNK
     Route: 065
  13. METHOTREXATE [Suspect]
     Active Substance: METHOTREXATE
     Indication: Prophylaxis against graft versus host disease
     Dosage: 15 MG/M2; ON DAY +1
     Route: 042
  14. METHOTREXATE [Suspect]
     Active Substance: METHOTREXATE
     Dosage: 10 MG/M2; ON DAY +3,+6, AND +11
     Route: 042
  15. LAPINE T-LYMPHOCYTE IMMUNE GLOBULIN [Suspect]
     Active Substance: LAPINE T-LYMPHOCYTE IMMUNE GLOBULIN
     Indication: Prophylaxis against graft versus host disease
     Dosage: 20 MG/KG
     Route: 065

REACTIONS (2)
  - Thrombotic microangiopathy [Fatal]
  - Product use in unapproved indication [Unknown]
